FAERS Safety Report 10645052 (Version 1)
Quarter: 2014Q4

REPORT INFORMATION
  Report Type: Spontaneous
  Country: US (occurrence: None)
  Receive Date: 20141210
  Receipt Date: 20141210
  Transmission Date: 20150529
  Serious: No
  Sender: FDA-Public Use
  Company Number: None

PATIENT
  Age: 58 Year
  Sex: Female
  Weight: 81.65 kg

DRUGS (1)
  1. PROLIA [Suspect]
     Active Substance: DENOSUMAB
     Indication: BONE DISORDER
     Dosage: DATE OF USE: 1 SHOT, INJECTION EVERY 6 MO, GIVEN INTO/UNDER THE SKIN

REACTIONS (4)
  - Feeling of body temperature change [None]
  - Vomiting [None]
  - Hyperhidrosis [None]
  - Diarrhoea [None]

NARRATIVE: CASE EVENT DATE: 20141205
